FAERS Safety Report 23067555 (Version 4)
Quarter: 2023Q4

REPORT INFORMATION
  Report Type: Spontaneous
  Country: HR (occurrence: HR)
  Receive Date: 20231016
  Receipt Date: 20231117
  Transmission Date: 20240109
  Serious: Yes (Other)
  Sender: FDA-Public Use
  Company Number: HR-BAXTER-2023BAX032289

PATIENT
  Age: 63 Year
  Sex: Male

DRUGS (29)
  1. CARFILZOMIB [Suspect]
     Active Substance: CARFILZOMIB
     Indication: Plasma cell myeloma
     Dosage: UNK, 1 TIME AS A PART OF KD+PACE REGIMEN (START DATE: MAR-2023)
     Route: 065
     Dates: start: 202303
  2. CARFILZOMIB [Suspect]
     Active Substance: CARFILZOMIB
     Indication: Light chain disease
     Dosage: UNK, 3 TIMES, AS A PART OF KD+MP REGIMEN (FROM APR-2023 TO JUN-2023)
     Route: 065
     Dates: start: 202304, end: 202306
  3. VELCADE [Suspect]
     Active Substance: BORTEZOMIB
     Indication: Light chain disease
     Dosage: UNK, 5 TIMES AS A PART OF VCD REGIMEN (FROM MAR-2022 TO MAY-2022)
     Route: 065
     Dates: start: 202203, end: 202205
  4. VELCADE [Suspect]
     Active Substance: BORTEZOMIB
     Indication: Plasma cell myeloma
  5. CYCLOPHOSPHAMIDE [Suspect]
     Active Substance: CYCLOPHOSPHAMIDE
     Indication: Light chain disease
     Dosage: UNK, 5 TIMES AS A PART OF VCD REGIMEN (FROM MAR-2022 TO MAY-2022)
     Route: 065
     Dates: start: 202203, end: 202205
  6. CYCLOPHOSPHAMIDE [Suspect]
     Active Substance: CYCLOPHOSPHAMIDE
     Indication: Plasma cell myeloma
     Dosage: UNK, 1 TIME AS A PART OF KD+PACE REGIMEN (START DATE: MAR-2023)
     Route: 065
     Dates: start: 202303
  7. MELPHALAN [Suspect]
     Active Substance: MELPHALAN
     Indication: Light chain disease
     Dosage: UNK, 3 TIMES, AS A PART OF KD+MP REGIMEN (FROM APR-2023 TO JUN-2023)
     Route: 065
     Dates: start: 202304, end: 202306
  8. MELPHALAN [Suspect]
     Active Substance: MELPHALAN
     Indication: Plasma cell myeloma
  9. DEXAMETHASONE [Suspect]
     Active Substance: DEXAMETHASONE
     Indication: Plasma cell myeloma
     Dosage: UNK, 3 TIMES, AS A PART OF KD+MP REGIMEN (FROM APR-2023 TO JUN-2023)
     Route: 065
     Dates: start: 202306, end: 202308
  10. DEXAMETHASONE [Suspect]
     Active Substance: DEXAMETHASONE
     Indication: Light chain disease
     Dosage: UNK, 5 TIMES AS A PART OF VCD REGIMEN (FROM MAR-2022 TO MAY-2022)
     Route: 065
     Dates: start: 202203, end: 202205
  11. DEXAMETHASONE [Suspect]
     Active Substance: DEXAMETHASONE
     Dosage: UNK, 1 TIME AS A PART OF KD+PACE REGIMEN (START DATE: MAR-2023)
     Route: 065
     Dates: start: 202303
  12. DEXAMETHASONE [Suspect]
     Active Substance: DEXAMETHASONE
     Dosage: UNK, 3 TIMES AS A PART OF VAD+ IXAZOMIB REGIMEN (FROM JUN-2023 TO AUG-2023)
     Route: 065
     Dates: start: 202304, end: 202306
  13. DEXAMETHASONE [Suspect]
     Active Substance: DEXAMETHASONE
     Dosage: UNK, 5 TIMES AS A PART OF DRD REGIMEN (FROM AUG-2022 TO FEB-2023)
     Route: 065
     Dates: start: 202208, end: 202302
  14. PREDNISONE [Suspect]
     Active Substance: PREDNISONE
     Indication: Plasma cell myeloma
     Dosage: UNK, 3 TIMES, AS A PART OF KD+MP REGIMEN (FROM APR-2023 TO JUN-2023)
     Route: 065
     Dates: start: 202304, end: 202306
  15. PREDNISONE [Suspect]
     Active Substance: PREDNISONE
     Indication: Plasma cell myeloma
  16. ETOPOSIDE [Suspect]
     Active Substance: ETOPOSIDE
     Indication: Plasma cell myeloma
     Dosage: UNK, 1 TIME AS A PART OF KD+PACE REGIMEN (START DATE: MAR-2023)
     Route: 065
     Dates: start: 202303
  17. ETOPOSIDE [Suspect]
     Active Substance: ETOPOSIDE
     Indication: Light chain disease
  18. IXAZOMIB [Suspect]
     Active Substance: IXAZOMIB
     Indication: Plasma cell myeloma
     Dosage: UNK, 3 TIMES AS A PART OF VAD+ IXAZOMIB REGIMEN (FROM JUN-2023 TO AUG-2023)
     Route: 065
     Dates: start: 202306, end: 202308
  19. IXAZOMIB [Suspect]
     Active Substance: IXAZOMIB
     Indication: Light chain disease
  20. CISPLATIN [Suspect]
     Active Substance: CISPLATIN
     Indication: Plasma cell myeloma
     Dosage: UNK, 1 TIME AS A PART OF KD+PACE REGIMEN (START DATE: MAR-2023)
     Route: 065
     Dates: start: 202303
  21. CISPLATIN [Suspect]
     Active Substance: CISPLATIN
     Indication: Light chain disease
  22. DOXORUBICIN HYDROCHLORIDE [Suspect]
     Active Substance: DOXORUBICIN HYDROCHLORIDE
     Indication: Plasma cell myeloma
     Dosage: UNK, 3 TIMES AS A PART OF VAD+ IXAZOMIB REGIMEN (FROM JUN-2023 TO AUG-2023)
     Route: 065
     Dates: start: 202306, end: 202308
  23. DOXORUBICIN HYDROCHLORIDE [Suspect]
     Active Substance: DOXORUBICIN HYDROCHLORIDE
     Indication: Light chain disease
     Dosage: UNK, 1 TIME AS A PART OF KD+PACE REGIMEN (START DATE: MAR-2023)
     Route: 065
     Dates: start: 202303
  24. VINCRISTINE [Suspect]
     Active Substance: VINCRISTINE
     Indication: Plasma cell myeloma
     Dosage: UNK, 3 TIMES AS A PART OF VAD+ IXAZOMIB REGIMEN (FROM JUN-2023 TO AUG-2023)
     Route: 065
     Dates: start: 202306, end: 202308
  25. VINCRISTINE [Suspect]
     Active Substance: VINCRISTINE
     Indication: Light chain disease
  26. LENALIDOMIDE [Suspect]
     Active Substance: LENALIDOMIDE
     Indication: Plasma cell myeloma
     Dosage: UNK, 5 TIMES AS A PART OF DRD REGIMEN (FROM AUG-2022 TO FEB-2023)
     Route: 065
     Dates: start: 202208, end: 202302
  27. LENALIDOMIDE [Suspect]
     Active Substance: LENALIDOMIDE
     Indication: Light chain disease
  28. DARZALEX [Suspect]
     Active Substance: DARATUMUMAB
     Indication: Plasma cell myeloma
     Dosage: UNK, 5 TIMES AS A PART OF DRD REGIMEN (FROM AUG-2022 TO FEB-2023)
     Route: 065
     Dates: start: 202208, end: 202302
  29. DARZALEX [Suspect]
     Active Substance: DARATUMUMAB
     Indication: Light chain disease

REACTIONS (4)
  - Light chain disease [Unknown]
  - Plasma cell myeloma [Unknown]
  - Therapy partial responder [Unknown]
  - Febrile neutropenia [Unknown]
